FAERS Safety Report 7655515-X (Version None)
Quarter: 2011Q3

REPORT INFORMATION
  Report Type: 
  Country: None (occurrence: None)
  Receive Date: 20110728
  Receipt Date: 20110722
  Transmission Date: 20111222
  Serious: No
  Sender: FDA-Public Use
  Company Number: 2011SP030503

PATIENT
  Age: 41 Year
  Sex: Female

DRUGS (3)
  1. REBETOL [Suspect]
     Indication: PRODUCT USED FOR UNKNOWN INDICATION
     Dosage: 600 MG, QD, PO
     Route: 048
  2. PEG-INTRON [Suspect]
     Indication: PRODUCT USED FOR UNKNOWN INDICATION
     Dosage: 60 MCG, QD, SC
     Route: 058
  3. URSO 250 [Concomitant]

REACTIONS (3)
  - STOMATITIS [None]
  - CONDITION AGGRAVATED [None]
  - CHEILITIS [None]
